FAERS Safety Report 15550429 (Version 1)
Quarter: 2018Q4

REPORT INFORMATION
  Report Type: Spontaneous
  Country: US (occurrence: US)
  Receive Date: 20181025
  Receipt Date: 20181025
  Transmission Date: 20190205
  Serious: No
  Sender: FDA-Public Use
  Company Number: US-PFIZER INC-2018428486

PATIENT
  Age: 45 Year
  Sex: Female
  Weight: 76.2 kg

DRUGS (1)
  1. NEURONTIN [Suspect]
     Active Substance: GABAPENTIN
     Indication: NERVE INJURY
     Dosage: 800 MG, 3X/DAY
     Route: 048
     Dates: start: 2014, end: 201807

REACTIONS (5)
  - Overdose [Unknown]
  - Memory impairment [Recovered/Resolved]
  - Product use in unapproved indication [Unknown]
  - Vision blurred [Recovered/Resolved]
  - Feeling abnormal [Recovered/Resolved]

NARRATIVE: CASE EVENT DATE: 2014
